FAERS Safety Report 6850773-3 (Version None)
Quarter: 2010Q3

REPORT INFORMATION
  Report Type: 
  Country: None (occurrence: None)
  Receive Date: 20100716
  Receipt Date: 20071023
  Transmission Date: 20110219
  Serious: No
  Sender: FDA-Public Use
  Company Number: US-PFIZER INC-2007090332

PATIENT
  Sex: Female
  Weight: 50.9 kg

DRUGS (11)
  1. CHANTIX [Suspect]
     Indication: SMOKING CESSATION THERAPY
     Dates: start: 20071001
  2. MELOXICAM [Concomitant]
  3. ZOLOFT [Concomitant]
  4. PRAVASTATIN [Concomitant]
  5. REGITINE [Concomitant]
  6. FOSAMAX [Concomitant]
  7. MULTI-VITAMINS [Concomitant]
  8. CHONDROITIN/GLUCOSAMINE [Concomitant]
  9. B-50 [Concomitant]
  10. CALCIUM [Concomitant]
  11. VITAMIN D [Concomitant]

REACTIONS (2)
  - NAUSEA [None]
  - VOMITING [None]
